FAERS Safety Report 5332649-6 (Version None)
Quarter: 2007Q2

REPORT INFORMATION
  Report Type: 
  Country: None (occurrence: None)
  Receive Date: 20070523
  Receipt Date: 20070511
  Transmission Date: 20071010
  Serious: Yes (Other)
  Sender: FDA-Public Use
  Company Number: US-PFIZER INC-2007039326

PATIENT
  Sex: Male
  Weight: 95.5 kg

DRUGS (3)
  1. CHANTIX [Suspect]
     Indication: EX-SMOKER
  2. LIPITOR [Concomitant]
     Indication: BLOOD CHOLESTEROL
  3. LISINOPRIL [Concomitant]
     Indication: HYPERTENSION

REACTIONS (2)
  - ARTHRALGIA [None]
  - BEDRIDDEN [None]
